FAERS Safety Report 6579751-9 (Version None)
Quarter: 2010Q1

REPORT INFORMATION
  Report Type: 
  Country: None (occurrence: None)
  Receive Date: 20100212
  Receipt Date: 20100209
  Transmission Date: 20100710
  Serious: Yes (Hospitalization)
  Sender: FDA-Public Use
  Company Number: A0843954A

PATIENT
  Age: 75 Year
  Sex: Female
  Weight: 56.8 kg

DRUGS (2)
  1. AVANDIA [Suspect]
     Dosage: 2MG PER DAY
     Route: 048
     Dates: start: 20010104, end: 20060101
  2. AVANDAMET [Suspect]
     Route: 048
     Dates: start: 20060101, end: 20080101

REACTIONS (4)
  - CEREBROVASCULAR ACCIDENT [None]
  - GAIT DISTURBANCE [None]
  - PARALYSIS [None]
  - SPEECH DISORDER [None]
